FAERS Safety Report 4862859-3 (Version None)
Quarter: 2005Q4

REPORT INFORMATION
  Report Type: 
  Country: None (occurrence: None)
  Receive Date: 20051221
  Receipt Date: 20051121
  Transmission Date: 20060501
  Serious: Yes (Hospitalization, Other)
  Sender: FDA-Public Use
  Company Number: US-AMGEN-US158576

PATIENT
  Sex: Male

DRUGS (13)
  1. EPOGEN [Suspect]
     Indication: DIALYSIS
     Dates: start: 19990101, end: 20051101
  2. PROTONIX [Concomitant]
  3. PROSCAR [Concomitant]
  4. AMIODARONE HCL [Concomitant]
     Route: 048
  5. SPIRIVA [Concomitant]
     Route: 048
  6. ALBUTEROL [Concomitant]
     Route: 048
  7. RENAGEL [Concomitant]
  8. VITAMIN B-12 [Concomitant]
     Route: 048
  9. COLACE [Concomitant]
  10. FLONASE [Concomitant]
     Route: 048
  11. ASPIRIN [Concomitant]
     Route: 048
  12. COUMADIN [Concomitant]
     Route: 048
  13. TOPROL-XL [Concomitant]
     Route: 048

REACTIONS (2)
  - APLASIA PURE RED CELL [None]
  - THERAPEUTIC RESPONSE DECREASED [None]
